FAERS Safety Report 7868131-1 (Version None)
Quarter: 2011Q4

REPORT INFORMATION
  Report Type: 
  Country: None (occurrence: None)
  Receive Date: 20111028
  Receipt Date: 20111014
  Transmission Date: 20120403
  Serious: Yes (Other)
  Sender: FDA-Public Use
  Company Number: US-ELI_LILLY_AND_COMPANY-US201110004612

PATIENT
  Age: 41 Year
  Sex: Female

DRUGS (4)
  1. CYMBALTA [Suspect]
     Indication: DEPRESSION
     Dosage: UNK, UNKNOWN
  2. CYMBALTA [Suspect]
     Dosage: 60 MG, TID
  3. CYMBALTA [Suspect]
     Dosage: UNK, UNKNOWN
  4. CYMBALTA [Suspect]
     Dosage: 60 MG, TID

REACTIONS (5)
  - GASTRIC BYPASS [None]
  - OVERDOSE [None]
  - MALABSORPTION [None]
  - DEPRESSION [None]
  - DRUG INEFFECTIVE [None]
